FAERS Safety Report 7374324-2 (Version None)
Quarter: 2011Q1

REPORT INFORMATION
  Report Type: 
  Country: None (occurrence: None)
  Receive Date: 20110315
  Receipt Date: 20110303
  Transmission Date: 20110831
  Serious: Yes (Hospitalization)
  Sender: FDA-Public Use
  Company Number: 2011-0646

PATIENT
  Age: 73 Year
  Sex: Female

DRUGS (1)
  1. APO-GO AMPOULES M(APO-GO) (APOMORPHINE HYDROCHLORIDE) (APOMORPHINE HYD [Suspect]
     Indication: PRODUCT USED FOR UNKNOWN INDICATION
     Dosage: 1.3 ML/HR, 16 HOURS/DAY (1.3 ML, CONTINUOUS FROM 07:00 TO 23:00), SUBCUTANEOUS
     Route: 058
     Dates: start: 20090403

REACTIONS (2)
  - PAIN IN EXTREMITY [None]
  - OEDEMA [None]
